FAERS Safety Report 25392153 (Version 2)
Quarter: 2025Q2

REPORT INFORMATION
  Report Type: Report from Study
  Country: US (occurrence: US)
  Receive Date: 20250603
  Receipt Date: 20250613
  Transmission Date: 20250717
  Serious: Yes (Other)
  Sender: BAUSCH AND LOMB
  Company Number: US-BAUSCH-BL-2025-006804

PATIENT
  Age: 31 Year
  Sex: Male
  Weight: 95 kg

DRUGS (6)
  1. XIFAXAN [Suspect]
     Active Substance: RIFAXIMIN
     Indication: Encephalopathy
     Route: 048
     Dates: start: 20240516
  2. ROCALTROL [Concomitant]
     Active Substance: CALCITRIOL
     Indication: Product used for unknown indication
     Route: 048
     Dates: start: 20230308
  3. SENSIPAR [Concomitant]
     Active Substance: CINACALCET HYDROCHLORIDE
     Indication: Product used for unknown indication
     Route: 048
     Dates: start: 20230602
  4. CONSTULOSE [Concomitant]
     Active Substance: LACTULOSE
     Indication: Encephalopathy
     Dosage: 10 GRAM/15 ML, TAKE 30 ML(CC) BY MOUTH 4 TIMES DAILY
     Route: 048
     Dates: start: 20230703
  5. REMERON [Concomitant]
     Active Substance: MIRTAZAPINE
     Indication: Product used for unknown indication
     Dosage: TAKE ONE TABLET BY MOUTH AT BEDTIME DAILY.
     Route: 048
     Dates: start: 20240701, end: 20250328
  6. MIRALAX [Concomitant]
     Active Substance: POLYETHYLENE GLYCOL 3350
     Indication: Product used for unknown indication
     Route: 048
     Dates: end: 20250305

REACTIONS (13)
  - Portal hypertensive gastropathy [Recovered/Resolved]
  - Cardiac murmur [Recovered/Resolved]
  - Ear discomfort [Recovered/Resolved]
  - Haemoptysis [Recovered/Resolved]
  - Joint swelling [Recovered/Resolved]
  - Right ventricular dilatation [Recovered/Resolved]
  - Duodenitis [Recovered/Resolved]
  - Varices oesophageal [Recovered/Resolved]
  - Blood potassium decreased [Recovered/Resolved]
  - Nausea [Recovered/Resolved]
  - Vomiting [Recovered/Resolved]
  - Pyrexia [Recovered/Resolved]
  - Oedema peripheral [Recovered/Resolved]

NARRATIVE: CASE EVENT DATE: 20250128
